FAERS Safety Report 8240783-6 (Version None)
Quarter: 2012Q1

REPORT INFORMATION
  Report Type: 
  Country: None (occurrence: None)
  Receive Date: 20120328
  Receipt Date: 20120322
  Transmission Date: 20120608
  Serious: Yes (Hospitalization)
  Sender: FDA-Public Use
  Company Number: PHEH2012US003945

PATIENT
  Sex: Female

DRUGS (4)
  1. LEXAPRO [Concomitant]
  2. GILENYA [Suspect]
     Indication: MULTIPLE SCLEROSIS
     Dosage: 0.5 MG, DAILY
     Route: 048
     Dates: start: 20111026, end: 20120214
  3. MARIJUANA [Concomitant]
  4. MUSCLE RELAXANTS [Concomitant]

REACTIONS (8)
  - CHEST PAIN [None]
  - NEUTROPHIL COUNT INCREASED [None]
  - BACK PAIN [None]
  - LUNG HYPERINFLATION [None]
  - LYMPHOCYTE COUNT DECREASED [None]
  - FIBRIN D DIMER INCREASED [None]
  - MONOCYTE COUNT INCREASED [None]
  - PLEURAL FIBROSIS [None]
